FAERS Safety Report 18063017 (Version 2)
Quarter: 2020Q3

REPORT INFORMATION
  Report Type: Spontaneous
  Country: IN (occurrence: IN)
  Receive Date: 20200723
  Receipt Date: 20200820
  Transmission Date: 20201103
  Serious: Yes (Other)
  Sender: FDA-Public Use
  Company Number: IN-PFIZER INC-2019139015

PATIENT
  Age: 29 Year
  Sex: Female

DRUGS (7)
  1. PALBACE [Suspect]
     Active Substance: PALBOCICLIB
     Indication: BREAST CANCER METASTATIC
     Dosage: 125 MG, CYCLIC (ONCE DAILY, FOR 21 DAYS OUT OF 28 DAYS CYCLE)
     Route: 048
     Dates: start: 20181215
  2. LEUPROLIDE [LEUPRORELIN] [Concomitant]
     Active Substance: LEUPROLIDE ACETATE
     Dosage: UNK
     Dates: start: 20200216
  3. ZOLADEX [Concomitant]
     Active Substance: GOSERELIN ACETATE
     Dosage: UNK
  4. LEUPROLIDE [LEUPRORELIN] [Concomitant]
     Active Substance: LEUPROLIDE ACETATE
     Dosage: 11.25 MG, MONTHLY
     Dates: start: 201901
  5. LETROZOLE. [Concomitant]
     Active Substance: LETROZOLE
     Dosage: 2.5 MG, 1X/DAY
  6. ZOLDRIA [Concomitant]
     Active Substance: ZOLEDRONIC ACID
     Dosage: 4 MG
     Route: 042
     Dates: start: 20190115
  7. ZOLDRIA [Concomitant]
     Active Substance: ZOLEDRONIC ACID
     Dosage: UNK
     Dates: start: 20200416

REACTIONS (8)
  - Neutropenia [Unknown]
  - Neoplasm progression [Unknown]
  - Platelet count decreased [Unknown]
  - Rash [Unknown]
  - Skin exfoliation [Unknown]
  - Haemoglobin decreased [Unknown]
  - Blood disorder [Unknown]
  - Alopecia [Unknown]

NARRATIVE: CASE EVENT DATE: 20200619
